FAERS Safety Report 18534631 (Version 2)
Quarter: 2021Q1

REPORT INFORMATION
  Report Type: Report from Study
  Country: US (occurrence: US)
  Receive Date: 20201123
  Receipt Date: 20210210
  Transmission Date: 20210419
  Serious: Yes (Other)
  Sender: FDA-Public Use
  Company Number: US-BAYER-2020-248698

PATIENT
  Age: 65 Year
  Sex: Female
  Weight: 50.79 kg

DRUGS (5)
  1. CAPECITABINE. [Concomitant]
     Active Substance: CAPECITABINE
     Dosage: UNK
  2. TEMOZOLOMIDE. [Concomitant]
     Active Substance: TEMOZOLOMIDE
     Dosage: UNK
  3. RETEVMO [Concomitant]
     Active Substance: SELPERCATINIB
     Dosage: UNK
  4. STIVARGA [Suspect]
     Active Substance: REGORAFENIB
     Indication: COLON CANCER
     Dosage: 120 MG DAILY FOR 21 DAYS
     Route: 048
     Dates: start: 202011
  5. STIVARGA [Suspect]
     Active Substance: REGORAFENIB
     Indication: COLON CANCER
     Dosage: 120 MG DAILY FOR 21 DAYS
     Route: 048

REACTIONS (5)
  - Pain in extremity [None]
  - Dehydration [Unknown]
  - Swelling face [None]
  - Diarrhoea [Unknown]
  - Off label use [None]

NARRATIVE: CASE EVENT DATE: 202011
